FAERS Safety Report 4452998-3 (Version None)
Quarter: 2004Q3

REPORT INFORMATION
  Report Type: 
  Country: None (occurrence: None)
  Receive Date: 20040916
  Receipt Date: 20040907
  Transmission Date: 20050211
  Serious: Yes (Death, Hospitalization)
  Sender: FDA-Public Use
  Company Number: 2004UW18683

PATIENT
  Age: 49 Year
  Sex: Male
  Weight: 99.2 kg

DRUGS (8)
  1. IRESSA [Suspect]
     Indication: METASTATIC NEOPLASM
     Dosage: 250 MG PO
     Route: 048
     Dates: start: 20040121, end: 20040627
  2. IRESSA [Suspect]
     Indication: NEUROENDOCRINE TUMOUR
     Dosage: 250 MG PO
     Route: 048
     Dates: start: 20040121, end: 20040627
  3. OCTREOTIDE ACETATE [Concomitant]
  4. PANTOPRAZOLE [Concomitant]
  5. LORAZEPAM [Concomitant]
  6. ACETAMINOPHEN AND HYDROCODONE BITARTRATE [Concomitant]
  7. LOPERAMIDE HCL [Concomitant]
  8. PROCHLORPERAZINE [Concomitant]

REACTIONS (17)
  - ABDOMINAL PAIN [None]
  - ANOREXIA [None]
  - CARCINOID TUMOUR OF THE SMALL BOWEL [None]
  - DEEP VEIN THROMBOSIS [None]
  - DEPRESSED LEVEL OF CONSCIOUSNESS [None]
  - DIARRHOEA [None]
  - DISSEMINATED INTRAVASCULAR COAGULATION [None]
  - FATIGUE [None]
  - FLUSHING [None]
  - HEPATIC FAILURE [None]
  - HYPOXIA [None]
  - MALIGNANT NEOPLASM PROGRESSION [None]
  - NAUSEA [None]
  - RASH PRURITIC [None]
  - RESPIRATORY DISTRESS [None]
  - SMALL INTESTINAL OBSTRUCTION [None]
  - VOMITING [None]
